FAERS Safety Report 8978494 (Version 3)
Quarter: 2013Q2

REPORT INFORMATION
  Report Type: Spontaneous
  Country: US (occurrence: US)
  Receive Date: 20121221
  Receipt Date: 20130429
  Transmission Date: 20140414
  Serious: Yes (Hospitalization)
  Sender: FDA-Public Use
  Company Number: US-BIOGENIDEC-2012BI061893

PATIENT
  Age: 53 Year
  Sex: Female

DRUGS (2)
  1. AVONEX [Suspect]
     Indication: MULTIPLE SCLEROSIS
     Route: 030
     Dates: start: 19961101
  2. AVONEX [Suspect]
     Indication: MULTIPLE SCLEROSIS
     Route: 030
     Dates: start: 2002

REACTIONS (7)
  - Hip fracture [Recovered/Resolved]
  - Fall [Recovered/Resolved]
  - Hypotension [Unknown]
  - Dysstasia [Not Recovered/Not Resolved]
  - Loss of control of legs [Unknown]
  - Abasia [Not Recovered/Not Resolved]
  - Influenza like illness [Unknown]
